FAERS Safety Report 7533646-2 (Version None)
Quarter: 2011Q2

REPORT INFORMATION
  Report Type: 
  Country: None (occurrence: None)
  Receive Date: 20110608
  Receipt Date: 20060322
  Transmission Date: 20111010
  Serious: Yes (Other)
  Sender: FDA-Public Use
  Company Number: PHHO2006BR04878

PATIENT
  Sex: Female
  Weight: 60 kg

DRUGS (1)
  1. EXFORGE [Suspect]
     Indication: HYPERTENSION
     Dosage: 165 MG, QD
     Route: 048

REACTIONS (2)
  - WEIGHT DECREASED [None]
  - MALIGNANT HYPERTENSION [None]
